FAERS Safety Report 8458102-9 (Version None)
Quarter: 2012Q2

REPORT INFORMATION
  Report Type: 
  Country: None (occurrence: None)
  Receive Date: 20120622
  Receipt Date: 20120612
  Transmission Date: 20120825
  Serious: Yes (Other)
  Sender: FDA-Public Use
  Company Number: US-JNJFOC-20120404282

PATIENT
  Age: 7 Decade
  Sex: Female

DRUGS (4)
  1. METHOTREXATE [Concomitant]
  2. REMICADE [Suspect]
     Route: 042
     Dates: start: 20111220
  3. REMICADE [Suspect]
     Indication: PRODUCT USED FOR UNKNOWN INDICATION
     Route: 042
     Dates: start: 20030120
  4. REMICADE [Suspect]
     Route: 042
     Dates: start: 20050501

REACTIONS (2)
  - NEOPLASM MALIGNANT [None]
  - BREAST CANCER [None]
